FAERS Safety Report 13849641 (Version 2)
Quarter: 2017Q4

REPORT INFORMATION
  Report Type: Spontaneous
  Country: US (occurrence: US)
  Receive Date: 20170809
  Receipt Date: 20171005
  Transmission Date: 20180320
  Serious: Yes (Life-Threatening, Hospitalization, Other)
  Sender: FDA-Public Use
  Company Number: US-PFIZER INC-2017342855

PATIENT
  Age: 65 Year
  Sex: Female
  Weight: 94.35 kg

DRUGS (28)
  1. FERROUS SULFATE. [Concomitant]
     Active Substance: FERROUS SULFATE
     Indication: IRON DEFICIENCY
     Dosage: 325 MG, 1X/DAY (SHE STARTED TAKING 7 MONTHS AGO)
     Route: 048
     Dates: start: 201703
  2. LISINOPRIL. [Concomitant]
     Active Substance: LISINOPRIL
     Indication: BLOOD PRESSURE ABNORMAL
     Dosage: 5 MG, 1X/DAY (SHE HAS BEEN TAKING FOR 3 YEARS)
     Route: 048
     Dates: start: 2014
  3. MONTELUKAST [Concomitant]
     Active Substance: MONTELUKAST SODIUM
     Indication: SLEEP DISORDER
     Dosage: 10 MG, 1X/DAY (AT NIGHT)
     Dates: start: 2011
  4. PREVAGEN [Concomitant]
     Active Substance: DIETARY SUPPLEMENT
     Indication: MEMORY IMPAIRMENT
     Dosage: 10 MG, 1X/DAY (IN THE MORNING)
     Dates: start: 2012
  5. PROAIR HFA [Concomitant]
     Active Substance: ALBUTEROL SULFATE
     Indication: CHRONIC OBSTRUCTIVE PULMONARY DISEASE
     Dosage: UNK, AS NEEDED (200 METERS 2 PUFFS)
     Route: 055
     Dates: start: 2013
  6. NORTRIPTYLINE [Concomitant]
     Active Substance: NORTRIPTYLINE
     Indication: DEPRESSED MOOD
     Dosage: 150 MG, DAILY (ONE CAPSULE AT 6PM AND 2 CAPSULES AT BEDTIME)
     Dates: start: 2011
  7. ROPINIROLE. [Concomitant]
     Active Substance: ROPINIROLE
     Indication: RESTLESS LEGS SYNDROME
     Dosage: 0.5 MG, 1X/DAY (AT NIGHT)
     Dates: start: 2012
  8. VITAMIN D [Concomitant]
     Active Substance: CHOLECALCIFEROL
     Indication: OSTEOPETROSIS
     Dosage: 500 IU, 1X/DAY (SHE STARTED TAKING 3 YEARS AGO)
     Route: 048
     Dates: start: 2014
  9. COENZYME Q10 [Concomitant]
     Active Substance: UBIDECARENONE
     Indication: CARDIAC DISORDER
     Dosage: 200 MG, 1X/DAY
     Route: 048
  10. XELJANZ [Suspect]
     Active Substance: TOFACITINIB CITRATE
     Indication: RHEUMATOID ARTHRITIS
     Dosage: 5 MG, UNK
     Route: 048
     Dates: end: 20170819
  11. BISOPROLOL FUMARATE. [Concomitant]
     Active Substance: BISOPROLOL FUMARATE
     Indication: BLOOD PRESSURE ABNORMAL
     Dosage: 5 MG, 1X/DAY (IN THE MORNING)
     Dates: start: 2011
  12. DULERA [Concomitant]
     Active Substance: FORMOTEROL FUMARATE DIHYDRATE\MOMETASONE FUROATE
     Indication: CHRONIC OBSTRUCTIVE PULMONARY DISEASE
     Dosage: UNK, 1X/DAY (2 PUFFS ONCE A DAY)
     Route: 055
     Dates: start: 2013
  13. NEXIUM [Concomitant]
     Active Substance: ESOMEPRAZOLE MAGNESIUM
     Indication: BARRETT^S OESOPHAGUS
     Dosage: 40 MG, 1X/DAY
     Route: 048
  14. BUPROPION HYDROCHLORIDE. [Concomitant]
     Active Substance: BUPROPION HYDROCHLORIDE
     Indication: DEPRESSION
     Dosage: 100 MG, 2X/DAY
     Route: 048
     Dates: start: 2016
  15. ROSUVASTATIN. [Concomitant]
     Active Substance: ROSUVASTATIN
     Indication: CEREBRAL DISORDER
     Dosage: 10 MG, 1X/DAY
     Route: 048
     Dates: start: 2014
  16. CENTRUM PRO NUTRIENTS OMEGA 3 [Concomitant]
     Indication: ANAEMIA
     Dosage: 1000 MG, 1X/DAY
     Route: 048
     Dates: start: 2016
  17. CYCLOBENZAPRINE. [Concomitant]
     Active Substance: CYCLOBENZAPRINE
     Indication: MUSCLE SPASMS
     Dosage: UNK, 3X/DAY (ONE AND A HALF TABLETS EVERY 8 HOURS)
  18. SYNTHROID [Concomitant]
     Active Substance: LEVOTHYROXINE SODIUM
     Indication: THYROID DISORDER
     Dosage: 88 UG, 1X/DAY
     Route: 048
     Dates: start: 1993
  19. CALCIUM+VITAMIN C [Concomitant]
     Indication: OSTEOPETROSIS
     Dosage: 2000 IU, 1X/DAY
     Route: 048
  20. XELJANZ [Suspect]
     Active Substance: TOFACITINIB CITRATE
     Dosage: 5 MG, 2X/DAY
     Route: 048
  21. MILK THISTLE [Concomitant]
     Active Substance: DIETARY SUPPLEMENT\HERBALS\MILK THISTLE
     Indication: HEPATIC STEATOSIS
     Dosage: 2000 MG, DAILY, (TWO A DAY)
     Route: 048
  22. CLONAZEPAM. [Concomitant]
     Active Substance: CLONAZEPAM
     Indication: HEAD INJURY
     Dosage: 4 MG, DAILY (1 TABLET IN THE MORNING, 1 TABLET AT 1PM, AND 2 TABLETS AT NIGHT)
  23. FOLIC ACID. [Concomitant]
     Active Substance: FOLIC ACID
     Indication: MEMORY IMPAIRMENT
     Dosage: 1 MG, 1X/DAY
     Route: 048
     Dates: start: 2011
  24. MIRTAZAPINE. [Concomitant]
     Active Substance: MIRTAZAPINE
     Dosage: 45 MG, 1X/DAY (BY NIGHT)
     Route: 048
     Dates: start: 2010
  25. PROLIA [Concomitant]
     Active Substance: DENOSUMAB
     Indication: OSTEOPOROSIS
     Dosage: UNK (60MG 1ML EVERY 6 MONTHS)
     Route: 058
     Dates: start: 2014
  26. BIOTIN [Concomitant]
     Active Substance: BIOTIN
     Indication: NAIL DISORDER
     Dosage: 5 MG, 1X/DAY
     Route: 048
     Dates: start: 2014
  27. BIOTIN [Concomitant]
     Active Substance: BIOTIN
     Indication: SKIN DISORDER
  28. BIOTIN [Concomitant]
     Active Substance: BIOTIN
     Indication: HAIR DISORDER

REACTIONS (5)
  - Ovarian cyst [Unknown]
  - Ovarian cancer [Unknown]
  - Breast neoplasm [Recovering/Resolving]
  - Breast cancer [Unknown]
  - Hepatic steatosis [Unknown]

NARRATIVE: CASE EVENT DATE: 20170901
